FAERS Safety Report 7379311-6 (Version None)
Quarter: 2011Q1

REPORT INFORMATION
  Report Type: 
  Country: None (occurrence: None)
  Receive Date: 20110329
  Receipt Date: 20110323
  Transmission Date: 20110831
  Serious: No
  Sender: FDA-Public Use
  Company Number: US-BIOGENIDEC-2010BI011715

PATIENT
  Sex: Female

DRUGS (1)
  1. TYSABRI [Suspect]
     Indication: MULTIPLE SCLEROSIS
     Route: 042
     Dates: start: 20071030

REACTIONS (8)
  - BRONCHITIS [None]
  - EAR INFECTION [None]
  - GASTRIC DISORDER [None]
  - FUNGAL INFECTION [None]
  - BLOOD IMMUNOGLOBULIN G DECREASED [None]
  - PHARYNGITIS STREPTOCOCCAL [None]
  - DIZZINESS [None]
  - URINARY TRACT INFECTION [None]
